FAERS Safety Report 8786184 (Version 1)
Quarter: 2012Q4

REPORT INFORMATION
  Report Type: Report from Study
  Country: US (occurrence: US)
  Receive Date: 20120914
  Receipt Date: 20120914
  Transmission Date: 20130627
  Serious: No
  Sender: FDA-Public Use
  Company Number: US-VERTEX PHARMACEUTICAL INC.-AE-2012-011558

PATIENT
  Age: 55 Year
  Sex: Male
  Weight: 86.36 kg

DRUGS (10)
  1. INCIVEK [Suspect]
     Indication: HEPATITIS C
     Route: 048
     Dates: start: 20110606
  2. PEGINTRON [Concomitant]
     Indication: HEPATITIS C
     Dates: start: 20110606
  3. RIBAPAK [Concomitant]
     Indication: HEPATITIS C
     Dates: start: 20110606
  4. RIBAPAK [Concomitant]
     Dates: start: 20110829
  5. PEGASYS [Concomitant]
     Indication: HEPATITIS C
     Dates: start: 20110829
  6. NORVASC [Concomitant]
     Indication: ESSENTIAL HYPERTENSION
     Route: 048
  7. NORVASC [Concomitant]
     Route: 048
  8. VIAGRA [Concomitant]
     Indication: ERECTILE DYSFUNCTION
  9. VIAGRA [Concomitant]
  10. XANAX [Concomitant]
     Indication: ANXIETY

REACTIONS (6)
  - Fatigue [Unknown]
  - Anaemia [Unknown]
  - Diarrhoea [Unknown]
  - Vomiting [Unknown]
  - Nausea [Unknown]
  - Anal pruritus [Unknown]
